FAERS Safety Report 8285989-5 (Version None)
Quarter: 2012Q2

REPORT INFORMATION
  Report Type: 
  Country: None (occurrence: None)
  Receive Date: 20120416
  Receipt Date: 20120403
  Transmission Date: 20120825
  Serious: Yes (Other)
  Sender: FDA-Public Use
  Company Number: NL-AMGEN-NLDSP2012022086

PATIENT
  Sex: Male

DRUGS (5)
  1. CORTICOSTEROID NOS [Concomitant]
     Dosage: UNK
  2. ENBREL [Suspect]
     Indication: RHEUMATOID ARTHRITIS
     Dosage: 50 MG, WEEKLY
     Dates: start: 20111016
  3. NAPROXEN [Concomitant]
     Dosage: UNK
  4. TRAMADOL HCL [Concomitant]
     Dosage: UNK
  5. OMEPRAZOLE [Concomitant]
     Dosage: UNK

REACTIONS (3)
  - RESPIRATORY TRACT INFECTION [None]
  - NASOPHARYNGITIS [None]
  - DYSPNOEA [None]
